FAERS Safety Report 16393997 (Version 2)
Quarter: 2019Q3

REPORT INFORMATION
  Report Type: Spontaneous
  Country: US (occurrence: US)
  Receive Date: 20190605
  Receipt Date: 20190704
  Transmission Date: 20191004
  Serious: No
  Sender: FDA-Public Use
  Company Number: US-ASTRAZENECA-2019SE71853

PATIENT
  Age: 26783 Day
  Sex: Female
  Weight: 79.4 kg

DRUGS (2)
  1. BYDUREON BCISE [Suspect]
     Active Substance: EXENATIDE
     Indication: TYPE 2 DIABETES MELLITUS
     Route: 058
     Dates: start: 20190201
  2. BYETTA [Suspect]
     Active Substance: EXENATIDE
     Indication: TYPE 2 DIABETES MELLITUS
     Route: 058
     Dates: end: 201901

REACTIONS (7)
  - Therapy cessation [Unknown]
  - Injection site mass [Not Recovered/Not Resolved]
  - Gingival disorder [Unknown]
  - Device leakage [Unknown]
  - Incorrect dose administered [Unknown]
  - Needle issue [Unknown]
  - Product dose omission [Recovered/Resolved]

NARRATIVE: CASE EVENT DATE: 20190201
